FAERS Safety Report 10010850 (Version 1)
Quarter: 2014Q1

REPORT INFORMATION
  Report Type: Spontaneous
  Country: CM (occurrence: None)
  Receive Date: 20140311
  Receipt Date: 20140311
  Transmission Date: 20141002
  Serious: Yes (Hospitalization)
  Sender: FDA-Public Use
  Company Number: 2014P1002000

PATIENT
  Age: 32 Year
  Sex: Male

DRUGS (6)
  1. ALBENDAZOLE [Suspect]
     Indication: ONCHOCERCIASIS
     Dosage: 1 TABLET;
     Dates: start: 20130627
  2. ALBENDAZOLE [Suspect]
     Indication: FILARIASIS LYMPHATIC
     Dosage: 1 TABLET;
     Dates: start: 20130627
  3. ALBENDAZOLE [Suspect]
     Indication: FILARIASIS
     Dosage: 1 TABLET;
     Dates: start: 20130627
  4. MECTIZAN (IVERMECTIN) [Suspect]
     Indication: FILARIASIS
     Dosage: 4 TABLETS,
     Dates: start: 20130627
  5. MECTIZAN (IVERMECTIN) [Suspect]
     Indication: ONCHOCERCIASIS
     Dosage: 4 TABLETS,
     Dates: start: 20130627
  6. MECTIZAN (IVERMECTIN) [Suspect]
     Indication: FILARIASIS LYMPHATIC
     Dosage: 4 TABLETS,
     Dates: start: 20130627

REACTIONS (7)
  - Depressed level of consciousness [None]
  - Depressed level of consciousness [None]
  - Conjunctival haemorrhage [None]
  - Arthralgia [None]
  - Myalgia [None]
  - Pyrexia [None]
  - Encephalopathy [None]
